FAERS Safety Report 8623732-8 (Version None)
Quarter: 2012Q3

REPORT INFORMATION
  Report Type: 
  Country: None (occurrence: None)
  Receive Date: 20120827
  Receipt Date: 20120817
  Transmission Date: 20120928
  Serious: Yes (Disabling, Other)
  Sender: FDA-Public Use
  Company Number: JP-ASTRAZENECA-2012SE51516

PATIENT
  Age: 69 Year
  Sex: Female
  Weight: 42 kg

DRUGS (16)
  1. OMEPRAZOLE [Suspect]
     Route: 048
     Dates: start: 20070627, end: 20071021
  2. OMEPRAZOLE [Suspect]
     Route: 048
     Dates: start: 20071022, end: 20101116
  3. MIYA BM [Concomitant]
     Indication: DYSPEPSIA
     Route: 048
     Dates: start: 20101118
  4. CRESTOR [Concomitant]
     Indication: HYPERLIPIDAEMIA
     Route: 048
     Dates: start: 20081126, end: 20101116
  5. WARFARIN SODIUM [Concomitant]
     Indication: SUBCLAVIAN ARTERY STENOSIS
     Dosage: 1.5-3 MG/DOSE EVERY DAY
     Route: 048
     Dates: start: 20101117
  6. MICARDIS [Concomitant]
     Indication: HYPERTENSION
     Route: 048
     Dates: start: 20090521, end: 20101116
  7. PANCREAZE [Concomitant]
     Indication: DYSPEPSIA
     Route: 048
     Dates: start: 20101118
  8. OMEPRAZOLE [Suspect]
     Indication: GASTROOESOPHAGEAL REFLUX DISEASE
     Route: 048
     Dates: start: 20040428
  9. AMOXICILLIN [Concomitant]
     Indication: HELICOBACTER INFECTION
     Route: 048
     Dates: start: 20040428
  10. CLARITHROMYCIN [Concomitant]
     Indication: HELICOBACTER INFECTION
     Route: 048
     Dates: start: 20040428
  11. AMLODIPINE BESYLATE [Concomitant]
     Indication: HYPERTENSION
     Route: 048
     Dates: start: 20090529, end: 20101116
  12. OMEPRAZOLE [Suspect]
     Dosage: OMEPRAZON, 10 MG DAILY
     Dates: start: 20050804, end: 20070626
  13. ZETIA [Concomitant]
     Indication: HYPERLIPIDAEMIA
     Route: 048
     Dates: start: 20111220
  14. PLETAL [Concomitant]
     Indication: SUBCLAVIAN ARTERY STENOSIS
     Route: 048
     Dates: start: 20101116
  15. NEXIUM [Suspect]
     Indication: GASTROOESOPHAGEAL REFLUX DISEASE
     Route: 048
     Dates: start: 20120616, end: 20120701
  16. PROTECADIN [Concomitant]
     Route: 048
     Dates: start: 20040501, end: 20050803

REACTIONS (6)
  - SUBCLAVIAN ARTERY STENOSIS [None]
  - GASTROINTESTINAL INFLAMMATION [None]
  - HYPERTENSION [None]
  - INTRACRANIAL ANEURYSM [None]
  - HYPOALBUMINAEMIA [None]
  - HYPERLIPIDAEMIA [None]
